FAERS Safety Report 17209156 (Version 4)
Quarter: 2020Q2

REPORT INFORMATION
  Report Type: Report from Study
  Country: CA (occurrence: CA)
  Receive Date: 20191227
  Receipt Date: 20200626
  Transmission Date: 20200713
  Serious: Yes (Other)
  Sender: FDA-Public Use
  Company Number: NVSC2019CA080087

PATIENT
  Age: 11 Year
  Sex: Female
  Weight: 42.6 kg

DRUGS (2)
  1. SOMATROPIN. [Suspect]
     Active Substance: SOMATROPIN
     Dosage: UNK
     Route: 065
     Dates: start: 20200217
  2. SOMATROPIN. [Suspect]
     Active Substance: SOMATROPIN
     Indication: GROWTH HORMONE DEFICIENCY
     Dosage: 1.1 MG, QD (5 MG/ 1.5 ML)
     Route: 058
     Dates: start: 20130909, end: 20190604

REACTIONS (5)
  - Disease progression [Unknown]
  - Psoriasis [Unknown]
  - Astrocytoma, low grade [Unknown]
  - Visual impairment [Unknown]
  - Acne [Unknown]

NARRATIVE: CASE EVENT DATE: 2014
